FAERS Safety Report 24364660 (Version 1)
Quarter: 2024Q3

REPORT INFORMATION
  Report Type: Spontaneous
  Country: BR (occurrence: BR)
  Receive Date: 20240926
  Receipt Date: 20240926
  Transmission Date: 20241017
  Serious: Yes (Hospitalization, Other)
  Sender: NOVO NORDISK
  Company Number: BR-NOVOPROD-1286395

PATIENT
  Age: 52 Year
  Sex: Female
  Weight: 103 kg

DRUGS (6)
  1. NOVOLIN R [Suspect]
     Active Substance: INSULIN HUMAN
     Indication: Diabetes mellitus
     Dosage: UNK (WHEN BLOOD GLUCOSE REACHES 180)
     Dates: start: 2020
  2. NOVOLIN R [Suspect]
     Active Substance: INSULIN HUMAN
     Dosage: UNK
     Dates: start: 2021
  3. NOVOLIN N [Suspect]
     Active Substance: INSULIN HUMAN
     Indication: Diabetes mellitus
     Dosage: 38 IU, QD (12IU IN THE MORNING, 14IU AT LUNCH AND 12IU AT DINNER))
     Dates: start: 2020, end: 2020
  4. NOVOLIN N [Suspect]
     Active Substance: INSULIN HUMAN
     Dosage: 28 IU, QD (14IU IN THE MORNING AND 14IU IN THE EVENING)
     Dates: start: 2021
  5. GLICLAZIDE [Concomitant]
     Active Substance: GLICLAZIDE
     Indication: Diabetes mellitus
     Dosage: UNK
  6. SERTRALINE [Concomitant]
     Active Substance: SERTRALINE HYDROCHLORIDE
     Indication: Antidepressant therapy
     Dosage: UNK

REACTIONS (3)
  - Renal cancer [Unknown]
  - Weight increased [Not Recovered/Not Resolved]
  - Product dose omission issue [Not Recovered/Not Resolved]

NARRATIVE: CASE EVENT DATE: 20220401
